FAERS Safety Report 17253258 (Version 4)
Quarter: 2022Q2

REPORT INFORMATION
  Report Type: Spontaneous
  Country: BE (occurrence: BE)
  Receive Date: 20200109
  Receipt Date: 20220426
  Transmission Date: 20220721
  Serious: Yes (Other)
  Sender: FDA-Public Use
  Company Number: BE-GLAXOSMITHKLINE-BE2019GSK180535

PATIENT
  Age: 54 Year
  Sex: Female

DRUGS (1)
  1. SUMATRIPTAN [Suspect]
     Active Substance: SUMATRIPTAN
     Indication: Migraine
     Dosage: UNK
     Route: 048

REACTIONS (4)
  - Maculopathy [Not Recovered/Not Resolved]
  - Vasoconstriction [Unknown]
  - Retinal ischaemia [Unknown]
  - Visual field defect [Not Recovered/Not Resolved]
